FAERS Safety Report 4983577-7 (Version None)
Quarter: 2006Q1

REPORT INFORMATION
  Report Type: 
  Country: None (occurrence: None)
  Receive Date: 20060227
  Receipt Date: 20050509
  Transmission Date: 20060701
  Serious: Yes (Hospitalization)
  Sender: FDA-Public Use
  Company Number: WAES 0505USA01035

PATIENT
  Sex: Female

DRUGS (1)
  1. ZOCOR [Suspect]
     Dosage: 40 MG/DAILY/PO
     Route: 048

REACTIONS (2)
  - RHABDOMYOLYSIS [None]
  - TREATMENT NONCOMPLIANCE [None]
